FAERS Safety Report 8075429-3 (Version None)
Quarter: 2012Q1

REPORT INFORMATION
  Report Type: 
  Country: None (occurrence: None)
  Receive Date: 20120120
  Receipt Date: 20120109
  Transmission Date: 20120608
  Serious: Yes (Hospitalization, Other)
  Sender: FDA-Public Use
  Company Number: 2012MA000665

PATIENT
  Age: 17 Year
  Sex: Male
  Weight: 63 kg

DRUGS (3)
  1. METHYLPHENIDATE HYDROCHLORIDE [Suspect]
     Indication: ATTENTION DEFICIT/HYPERACTIVITY DISORDER
     Dosage: 27 MG;QD
  2. RISPERIDONE [Concomitant]
  3. ARIPIPRAZOLE [Concomitant]

REACTIONS (3)
  - PSYCHOTIC DISORDER [None]
  - HALLUCINATION, AUDITORY [None]
  - NEGATIVE THOUGHTS [None]
